FAERS Safety Report 13796963 (Version 4)
Quarter: 2018Q2

REPORT INFORMATION
  Report Type: Spontaneous
  Country: IT (occurrence: IT)
  Receive Date: 20170726
  Receipt Date: 20180423
  Transmission Date: 20180711
  Serious: Yes (Other)
  Sender: FDA-Public Use
  Company Number: PHHY2017IT107928

PATIENT
  Age: 70 Year
  Sex: Male

DRUGS (6)
  1. NORMAST [Concomitant]
     Indication: PRODUCT USED FOR UNKNOWN INDICATION
     Dosage: UNK UNK, QD
     Route: 048
  2. LYRICA [Concomitant]
     Active Substance: PREGABALIN
     Indication: PERIPHERAL SENSORIMOTOR NEUROPATHY
     Dosage: 300 MG, QD
     Route: 048
  3. TARGIN [Concomitant]
     Active Substance: NALOXONE HYDROCHLORIDE\OXYCODONE HYDROCHLORIDE
     Indication: PRODUCT USED FOR UNKNOWN INDICATION
     Dosage: 40 MG, QD
     Route: 048
  4. ELIGARD [Concomitant]
     Active Substance: LEUPROLIDE ACETATE
     Indication: PROSTATE CANCER
     Dosage: UNK UNK, QMO
     Route: 058
  5. BICALUTAMIDE AHCL [Concomitant]
     Active Substance: BICALUTAMIDE
     Indication: PROSTATE CANCER
     Dosage: 50 MG, QD
     Route: 048
  6. ZOMETA [Suspect]
     Active Substance: ZOLEDRONIC ACID
     Indication: PROSTATE CANCER METASTATIC
     Dosage: UNK MG, UNK
     Route: 065
     Dates: start: 201510

REACTIONS (8)
  - Pain [Recovered/Resolved with Sequelae]
  - Osteonecrosis of jaw [Recovered/Resolved with Sequelae]
  - Hernia [Unknown]
  - Polyneuropathy [Unknown]
  - Hypoaesthesia oral [Recovered/Resolved with Sequelae]
  - Osteomyelitis [Unknown]
  - Osteonecrosis [Recovered/Resolved with Sequelae]
  - Pain in jaw [Recovered/Resolved with Sequelae]

NARRATIVE: CASE EVENT DATE: 20170616
